FAERS Safety Report 8210337-6 (Version None)
Quarter: 2012Q1

REPORT INFORMATION
  Report Type: 
  Country: None (occurrence: None)
  Receive Date: 20120314
  Receipt Date: 20120305
  Transmission Date: 20120608
  Serious: Yes (Other)
  Sender: FDA-Public Use
  Company Number: FR-ASTRAZENECA-2012SE16699

PATIENT
  Age: 889 Month
  Sex: Female

DRUGS (3)
  1. KETEK [Concomitant]
     Dates: start: 20111220
  2. LEVOFLOXACIN [Concomitant]
     Dates: start: 20111221, end: 20111225
  3. CRESTOR [Suspect]
     Route: 048

REACTIONS (1)
  - HYPOCHOLESTEROLAEMIA [None]
